FAERS Safety Report 9040873 (Version 1)
Quarter: 2013Q1

REPORT INFORMATION
  Report Type: Spontaneous
  Country: US (occurrence: None)
  Receive Date: 20130123
  Receipt Date: 20130123
  Transmission Date: 20140127
  Serious: Yes (Life-Threatening, Hospitalization)
  Sender: FDA-Public Use
  Company Number: None

PATIENT
  Age: 64 Year
  Sex: Male
  Weight: 109.9 kg

DRUGS (4)
  1. MORPHINE [Suspect]
     Indication: PAIN
     Route: 048
     Dates: start: 20121228, end: 20130101
  2. MORPHINE [Suspect]
     Indication: FEMUR FRACTURE
     Route: 048
     Dates: start: 20121228, end: 20130101
  3. OXYCODONE [Suspect]
     Indication: PAIN
     Dates: start: 20121228, end: 20130101
  4. OXYCODONE [Suspect]
     Indication: FEMUR FRACTURE
     Dates: start: 20121228, end: 20130101

REACTIONS (2)
  - Sedation [None]
  - Toxicity to various agents [None]
